FAERS Safety Report 21594847 (Version 1)
Quarter: 2022Q4

REPORT INFORMATION
  Report Type: Spontaneous
  Country: US (occurrence: US)
  Receive Date: 20221115
  Receipt Date: 20221115
  Transmission Date: 20230113
  Serious: No
  Sender: FDA-Public Use
  Company Number: US-BAUSCH-BL-2022-025281

PATIENT
  Age: 87 Year
  Sex: Female
  Weight: 45.400 kg

DRUGS (1)
  1. XIFAXAN [Suspect]
     Active Substance: RIFAXIMIN
     Indication: Irritable bowel syndrome
     Route: 048
     Dates: start: 20221107

REACTIONS (2)
  - Faeces discoloured [Not Recovered/Not Resolved]
  - Abdominal pain lower [Not Recovered/Not Resolved]

NARRATIVE: CASE EVENT DATE: 20221101
